FAERS Safety Report 9801617 (Version 1)
Quarter: 2014Q1

REPORT INFORMATION
  Report Type: Spontaneous
  Country: US (occurrence: US)
  Receive Date: 20140107
  Receipt Date: 20140107
  Transmission Date: 20141002
  Serious: No
  Sender: FDA-Public Use
  Company Number: US-009507513-1401USA001917

PATIENT
  Age: 48 Year
  Sex: Female

DRUGS (6)
  1. CLARITIN-D-24 [Suspect]
     Indication: RHINITIS
     Dosage: UNK, UNKNOWN
     Route: 048
  2. CLARITIN-D-24 [Suspect]
     Indication: NASAL CONGESTION
  3. CLARITIN-D-24 [Suspect]
     Indication: DYSPNOEA
  4. CLARITIN-D-24 [Suspect]
     Indication: LACRIMATION INCREASED
  5. CLARITIN-D-24 [Suspect]
     Indication: SINUS HEADACHE
  6. CLARITIN-D-24 [Suspect]
     Indication: EYE PRURITUS

REACTIONS (1)
  - Feeling abnormal [Unknown]
